FAERS Safety Report 19767930 (Version 1)
Quarter: 2021Q3

REPORT INFORMATION
  Report Type: Spontaneous
  Country: US (occurrence: US)
  Receive Date: 20210826
  Receipt Date: 20210826
  Transmission Date: 20211014
  Serious: No
  Sender: FDA-Public Use
  Company Number: None

PATIENT
  Sex: Female

DRUGS (1)
  1. OTEZLA [Suspect]
     Active Substance: APREMILAST
     Indication: PSORIASIS
     Dosage: OTHER DOSE:10MG, 20MG, 30MG; 1 TABLET TWICE A CAY PO?
     Route: 048
     Dates: start: 20210820

REACTIONS (1)
  - Therapy non-responder [None]
